FAERS Safety Report 15690916 (Version 3)
Quarter: 2019Q1

REPORT INFORMATION
  Report Type: Spontaneous
  Country: US (occurrence: US)
  Receive Date: 20181205
  Receipt Date: 20190215
  Transmission Date: 20190417
  Serious: Yes (Other)
  Sender: FDA-Public Use
  Company Number: US-SA-2018SA328183

PATIENT
  Age: 23 Year
  Sex: Female
  Weight: 59 kg

DRUGS (18)
  1. TAXOTERE [Suspect]
     Active Substance: DOCETAXEL
     Indication: OVARIAN CANCER
     Dosage: 120 MG, Q3W
     Route: 042
     Dates: start: 20091105, end: 20091105
  2. TAXOTERE [Suspect]
     Active Substance: DOCETAXEL
     Dosage: 120 MG, Q3W
     Route: 042
     Dates: start: 20100218, end: 20100218
  3. BENADRYL [Concomitant]
     Active Substance: DIPHENHYDRAMINE HYDROCHLORIDE
     Dosage: 25 MG, UNK
     Route: 065
     Dates: start: 20091105, end: 20091105
  4. TAGAMET [CIMETIDINE HYDROCHLORIDE] [Concomitant]
     Dosage: 300 MG, UNK
     Route: 065
     Dates: start: 20091105, end: 20091105
  5. CARBOPLATIN. [Concomitant]
     Active Substance: CARBOPLATIN
     Dosage: 840 MG, UNK
     Route: 065
     Dates: start: 20091105, end: 20091105
  6. CARBOPLATIN. [Concomitant]
     Active Substance: CARBOPLATIN
     Dosage: 710 MG, UNK
     Dates: start: 20100106, end: 20100106
  7. CARBOPLATIN. [Concomitant]
     Active Substance: CARBOPLATIN
     Dosage: 865 MG, UNK
     Dates: start: 20100218, end: 20100218
  8. TAXOTERE [Suspect]
     Active Substance: DOCETAXEL
     Dosage: 120 MG, UNK
     Route: 042
     Dates: start: 20091216, end: 20091216
  9. CARBOPLATIN. [Concomitant]
     Active Substance: CARBOPLATIN
     Dosage: 765 MG, UNK
     Route: 065
     Dates: start: 20091125, end: 20091125
  10. TAXOL [Concomitant]
     Active Substance: PACLITAXEL
  11. TAXOTERE [Suspect]
     Active Substance: DOCETAXEL
     Dosage: 120 MG, UNK
     Route: 042
     Dates: start: 20100106, end: 20100106
  12. BENADRYL [Concomitant]
     Active Substance: DIPHENHYDRAMINE HYDROCHLORIDE
     Dosage: 50 MG, UNK
     Dates: start: 20091125, end: 20091125
  13. TAGAMET [CIMETIDINE HYDROCHLORIDE] [Concomitant]
     Dosage: 300 MG, UNK
     Dates: start: 20091125, end: 20091125
  14. PEPCID [ALUMINIUM HYDROXIDE;MAGNESIUM TRISILICATE;SODIUM ALGINATE] [Concomitant]
     Dosage: 20 MG, UNK
     Route: 042
     Dates: start: 20091216, end: 20091216
  15. HEPARIN [Concomitant]
     Active Substance: HEPARIN SODIUM
  16. TAXOTERE [Suspect]
     Active Substance: DOCETAXEL
     Dosage: 120 MG, UNK
     Route: 042
     Dates: start: 20091125, end: 20091125
  17. CARBOPLATIN. [Concomitant]
     Active Substance: CARBOPLATIN
     Dosage: 710 MG, UNK
     Dates: start: 20091216, end: 20091216
  18. PEPCID [ALUMINIUM HYDROXIDE;MAGNESIUM TRISILICATE;SODIUM ALGINATE] [Concomitant]
     Dosage: 20 MG, UNK
     Route: 042
     Dates: start: 20100218, end: 20100218

REACTIONS (2)
  - Psychological trauma [Unknown]
  - Alopecia [Not Recovered/Not Resolved]

NARRATIVE: CASE EVENT DATE: 20091201
